FAERS Safety Report 12323828 (Version 2)
Quarter: 2016Q2

REPORT INFORMATION
  Report Type: Spontaneous
  Country: TR (occurrence: TR)
  Receive Date: 20160502
  Receipt Date: 20160525
  Transmission Date: 20160815
  Serious: Yes (Death)
  Sender: FDA-Public Use
  Company Number: TR-PFIZER INC-2016237166

PATIENT
  Age: 70 Year
  Sex: Female

DRUGS (2)
  1. INTERFERON [Suspect]
     Active Substance: INTERFERON
  2. SUTENT [Suspect]
     Active Substance: SUNITINIB MALATE
     Indication: RENAL CELL CARCINOMA
     Dosage: 50 MG, UNK

REACTIONS (2)
  - General physical health deterioration [Fatal]
  - Hepatic failure [Fatal]
